FAERS Safety Report 19325591 (Version 1)
Quarter: 2021Q2

REPORT INFORMATION
  Report Type: Spontaneous
  Country: US (occurrence: US)
  Receive Date: 20210528
  Receipt Date: 20210528
  Transmission Date: 20210717
  Serious: Yes (Other)
  Sender: FDA-Public Use
  Company Number: US-PURDUE-USA-2020-0233009

PATIENT
  Sex: Male

DRUGS (1)
  1. OXYCONTIN [Suspect]
     Active Substance: OXYCODONE HYDROCHLORIDE
     Indication: PAIN
     Dosage: UNK
     Route: 048
     Dates: start: 200002

REACTIONS (6)
  - Anxiety [Unknown]
  - Hyperhidrosis [Unknown]
  - Drug dependence [Unknown]
  - Unevaluable event [Unknown]
  - Emotional distress [Unknown]
  - Cardiac discomfort [Unknown]
